FAERS Safety Report 14903817 (Version 1)
Quarter: 2018Q2

REPORT INFORMATION
  Report Type: Spontaneous
  Country: US (occurrence: US)
  Receive Date: 20180516
  Receipt Date: 20180516
  Transmission Date: 20180711
  Serious: No
  Sender: FDA-Public Use
  Company Number: US-TEVA-2018-US-893225

PATIENT
  Sex: Male

DRUGS (1)
  1. PROGLYCEM [Suspect]
     Active Substance: DIAZOXIDE
     Route: 065

REACTIONS (3)
  - Anxiety [Unknown]
  - Drug ineffective [Unknown]
  - Drug intolerance [Unknown]
